FAERS Safety Report 9779635 (Version 1)
Quarter: 2013Q4

REPORT INFORMATION
  Report Type: Spontaneous
  Country: JP (occurrence: JP)
  Receive Date: 20131223
  Receipt Date: 20131223
  Transmission Date: 20140711
  Serious: Yes (Other)
  Sender: FDA-Public Use
  Company Number: JP-PFIZER INC-2013364145

PATIENT
  Age: 7 Decade
  Sex: Male

DRUGS (1)
  1. SOLU-MEDROL [Suspect]
     Indication: PYODERMA GANGRENOSUM

REACTIONS (1)
  - Hepatitis B [Recovered/Resolved]
